FAERS Safety Report 9093522 (Version 4)
Quarter: 2013Q2

REPORT INFORMATION
  Report Type: Spontaneous
  Country: JP (occurrence: JP)
  Receive Date: 20130201
  Receipt Date: 20130515
  Transmission Date: 20140414
  Serious: Yes (Hospitalization, Other)
  Sender: FDA-Public Use
  Company Number: JP-PFIZER INC-2013040897

PATIENT
  Age: 7 Decade
  Sex: Male

DRUGS (6)
  1. LYRICA [Suspect]
     Dosage: 25 MG, 2X/DAY
     Route: 048
     Dates: start: 2012, end: 20130118
  2. LYRICA [Suspect]
     Dosage: 75 MG, 2X/DAY
     Route: 048
     Dates: start: 20130119, end: 201301
  3. PARIET [Suspect]
     Dosage: 10 MG, 1X/DAY
     Route: 048
     Dates: start: 20121225, end: 20130125
  4. METHYCOBAL [Concomitant]
     Indication: ILLUSION
     Dosage: 500 MG, 3X/DAY
     Route: 048
     Dates: start: 20130107, end: 20130123
  5. LOXONIN [Concomitant]
     Indication: PROCEDURAL PAIN
     Dosage: 1 DF, 3X/DAY
     Route: 048
     Dates: start: 20111229, end: 20121226
  6. MUCOSTA [Concomitant]
     Indication: GASTROINTESTINAL DISORDER
     Dosage: 1 DF, 3X/DAY
     Route: 048
     Dates: start: 20111229, end: 20121226

REACTIONS (4)
  - Hepatic function abnormal [Recovered/Resolved]
  - Femur fracture [Unknown]
  - Nausea [Unknown]
  - Dizziness [Unknown]
